FAERS Safety Report 7639675-2 (Version None)
Quarter: 2011Q3

REPORT INFORMATION
  Report Type: 
  Country: None (occurrence: None)
  Receive Date: 20110727
  Receipt Date: 20110714
  Transmission Date: 20111222
  Serious: Yes (Other)
  Sender: FDA-Public Use
  Company Number: CA-ELI_LILLY_AND_COMPANY-CA201107003677

PATIENT
  Sex: Male

DRUGS (15)
  1. RESTORIL [Concomitant]
  2. ZYPREXA [Suspect]
     Dosage: 12.5 MG, UNK
  3. ZYPREXA [Suspect]
     Dosage: 17.5 MG, UNK
  4. RISPERDAL [Concomitant]
  5. ZYPREXA [Suspect]
     Indication: SCHIZOPHRENIA, PARANOID TYPE
     Dosage: 2.5 MG, UNK
  6. ZYPREXA [Suspect]
     Dosage: 5 MG, EACH EVENING
  7. ZYPREXA [Suspect]
     Dosage: 7.5 MG, EACH EVENING
  8. ZYPREXA [Suspect]
     Dosage: 15 MG, UNK
  9. SEROQUEL [Concomitant]
  10. ZYPREXA [Suspect]
     Dosage: 10 MG, EACH EVENING
  11. ZYPREXA [Suspect]
     Dosage: 20 MG, UNK
  12. LOXAPINE HCL [Concomitant]
  13. LECTOPAM TAB [Concomitant]
  14. DALMANE [Concomitant]
  15. XANAX [Concomitant]

REACTIONS (9)
  - WEIGHT INCREASED [None]
  - HAEMATURIA [None]
  - RENAL CYST [None]
  - HYPERTENSION [None]
  - HYPERGLYCAEMIA [None]
  - DYSLIPIDAEMIA [None]
  - HEPATIC STEATOSIS [None]
  - GLUCOSE TOLERANCE IMPAIRED [None]
  - ALANINE AMINOTRANSFERASE INCREASED [None]
